FAERS Safety Report 15051621 (Version 1)
Quarter: 2018Q2

REPORT INFORMATION
  Report Type: Spontaneous
  Country: TR (occurrence: TR)
  Receive Date: 20180622
  Receipt Date: 20180622
  Transmission Date: 20180711
  Serious: Yes (Congenital Anomaly, Other)
  Sender: FDA-Public Use
  Company Number: TR-AKORN PHARMACEUTICALS-2018AKN00862

PATIENT
  Sex: Male

DRUGS (1)
  1. ISOTRETINOIN. [Suspect]
     Active Substance: ISOTRETINOIN
     Dosage: UNK
     Route: 064

REACTIONS (8)
  - Foetal exposure during pregnancy [Recovered/Resolved]
  - Congenital cerebellar agenesis [Not Recovered/Not Resolved]
  - Anotia [Not Recovered/Not Resolved]
  - Truncus arteriosus persistent [Not Recovered/Not Resolved]
  - Congenital cerebrovascular anomaly [Not Recovered/Not Resolved]
  - Hypertelorism of orbit [Not Recovered/Not Resolved]
  - Cerebellar hypoplasia [Not Recovered/Not Resolved]
  - Teratogenicity [Not Recovered/Not Resolved]
